FAERS Safety Report 15504307 (Version 1)
Quarter: 2018Q4

REPORT INFORMATION
  Report Type: Report from Study
  Country: CO (occurrence: CO)
  Receive Date: 20181016
  Receipt Date: 20181016
  Transmission Date: 20190205
  Serious: Yes (Hospitalization)
  Sender: FDA-Public Use
  Company Number: CO-TOLMAR, INC.-2018CO004336

PATIENT

DRUGS (1)
  1. ELIGARD [Suspect]
     Active Substance: LEUPROLIDE ACETATE
     Indication: PROSTATE CANCER
     Dosage: 45 MG, UNK
     Route: 058
     Dates: start: 20170404

REACTIONS (5)
  - Dizziness [Recovered/Resolved]
  - Road traffic accident [Recovered/Resolved with Sequelae]
  - Joint injury [Recovered/Resolved with Sequelae]
  - Diarrhoea [Recovered/Resolved]
  - Abdominal pain [Recovered/Resolved]

NARRATIVE: CASE EVENT DATE: 20180424
